FAERS Safety Report 25591512 (Version 3)
Quarter: 2025Q3

REPORT INFORMATION
  Report Type: Spontaneous
  Country: US (occurrence: US)
  Receive Date: 20250722
  Receipt Date: 20250808
  Transmission Date: 20251021
  Serious: No
  Sender: TAKEDA
  Company Number: US-TAKEDA-2025TUS064347

PATIENT
  Sex: Female

DRUGS (2)
  1. ADDERALL XR [Suspect]
     Active Substance: AMPHETAMINE ASPARTATE\AMPHETAMINE SULFATE\DEXTROAMPHETAMINE SACCHARATE\DEXTROAMPHETAMINE SULFATE
     Indication: Product used for unknown indication
     Dosage: 30 MILLIGRAM, BID
  2. ADDERALL XR [Suspect]
     Active Substance: AMPHETAMINE ASPARTATE\AMPHETAMINE SULFATE\DEXTROAMPHETAMINE SACCHARATE\DEXTROAMPHETAMINE SULFATE

REACTIONS (13)
  - Bone pain [Unknown]
  - Product availability issue [Unknown]
  - Physical product label issue [Unknown]
  - Product quality issue [Unknown]
  - Illness [Unknown]
  - Product physical issue [Unknown]
  - Product dispensing error [Unknown]
  - Frustration tolerance decreased [Unknown]
  - Pain [Unknown]
  - Neck pain [Unknown]
  - Asthenia [Unknown]
  - Dyspnoea [Unknown]
  - Anger [Unknown]
